FAERS Safety Report 16473758 (Version 1)
Quarter: 2019Q2

REPORT INFORMATION
  Report Type: Spontaneous
  Country: GB (occurrence: GB)
  Receive Date: 20190625
  Receipt Date: 20190625
  Transmission Date: 20190711
  Serious: Yes (Hospitalization)
  Sender: FDA-Public Use
  Company Number: GB-PFIZER INC-2019268497

PATIENT
  Age: 42 Year
  Sex: Female

DRUGS (2)
  1. PARACETAMOL [Concomitant]
     Active Substance: ACETAMINOPHEN
     Dosage: UNK
  2. IBUPROFEN. [Suspect]
     Active Substance: IBUPROFEN
     Indication: ABDOMINAL PAIN UPPER
     Dosage: 1600 MG, DAILY
     Route: 048
     Dates: start: 20190503, end: 20190516

REACTIONS (5)
  - Gastrointestinal haemorrhage [Recovering/Resolving]
  - Overdose [Unknown]
  - Melaena [Recovering/Resolving]
  - Abdominal pain [Recovering/Resolving]
  - Helicobacter test positive [Recovering/Resolving]

NARRATIVE: CASE EVENT DATE: 20190515
